FAERS Safety Report 4356657-7 (Version None)
Quarter: 2004Q2

REPORT INFORMATION
  Report Type: 
  Country: None (occurrence: None)
  Receive Date: 20040511
  Receipt Date: 20040511
  Transmission Date: 20050107
  Serious: No
  Sender: FDA-Public Use
  Company Number: None

PATIENT
  Age: 46 Year
  Sex: Male
  Weight: 132 kg

DRUGS (2)
  1. VANCOMYCIN [Suspect]
     Indication: ABSCESS
     Dosage: 1G Q24 IV
     Route: 042
     Dates: start: 20040423
  2. VANCOMYCIN [Suspect]
     Indication: LOCALISED INFECTION
     Dosage: 1G Q24 IV
     Route: 042
     Dates: start: 20040423

REACTIONS (1)
  - HYPOACUSIS [None]
